FAERS Safety Report 4793704-2 (Version None)
Quarter: 2005Q4

REPORT INFORMATION
  Report Type: 
  Country: None (occurrence: None)
  Receive Date: 20051011
  Receipt Date: 20050930
  Transmission Date: 20060501
  Serious: Yes (Other)
  Sender: FDA-Public Use
  Company Number: US-JNJFOC-20051001075

PATIENT
  Sex: Male
  Weight: 61.24 kg

DRUGS (10)
  1. DURAGESIC-100 [Suspect]
     Route: 062
  2. DURAGESIC-100 [Suspect]
     Route: 062
  3. DURAGESIC-100 [Suspect]
     Route: 062
  4. DURAGESIC-100 [Suspect]
     Route: 062
  5. PAIN MANAGEMENT INJECTION [Concomitant]
     Indication: PAIN MANAGEMENT
     Route: 050
  6. OXYCODONE HCL [Concomitant]
     Indication: PAIN
  7. VICODIN [Concomitant]
  8. VICODIN [Concomitant]
     Indication: PAIN
  9. DARVOCET-N 100 [Concomitant]
  10. DARVOCET-N 100 [Concomitant]
     Indication: PAIN

REACTIONS (6)
  - FALL [None]
  - OSTEOARTHRITIS [None]
  - SPINAL COLUMN STENOSIS [None]
  - THERAPEUTIC RESPONSE DECREASED [None]
  - ULCER HAEMORRHAGE [None]
  - WRIST FRACTURE [None]
